FAERS Safety Report 9686084 (Version 2)
Quarter: 2013Q4

REPORT INFORMATION
  Report Type: Spontaneous
  Country: US (occurrence: US)
  Receive Date: 20131113
  Receipt Date: 20131113
  Transmission Date: 20140711
  Serious: No
  Sender: FDA-Public Use
  Company Number: US-ALLERGAN-1214790US

PATIENT
  Age: 73 Year
  Sex: Male

DRUGS (9)
  1. COMBIGAN[R] [Suspect]
     Indication: INTRAOCULAR PRESSURE INCREASED
     Dosage: 2 GTT, BID
     Route: 047
     Dates: start: 20121022, end: 20121029
  2. TRAVATAN Z [Concomitant]
     Indication: INTRAOCULAR PRESSURE INCREASED
     Dosage: 2 GTT, QHS
     Route: 046
  3. PRAVASTATIN [Concomitant]
     Indication: BLOOD CHOLESTEROL INCREASED
     Dosage: UNK
     Route: 048
  4. AVALIDE [Concomitant]
     Indication: HYPERTENSION
     Dosage: UNK
     Route: 048
     Dates: start: 2012
  5. AVALIDE [Concomitant]
     Dosage: UNK, QD
     Route: 048
     Dates: end: 20121029
  6. TRIGLYCERIDE MEDICATION NOS [Concomitant]
     Indication: BLOOD TRIGLYCERIDES INCREASED
     Dosage: UNK, QD
     Route: 048
  7. GABAPENTIN [Concomitant]
     Indication: NEUROPATHY PERIPHERAL
     Dosage: UNK
  8. XANAX [Concomitant]
     Indication: INSOMNIA
     Dosage: UNK UNK, QHS
     Route: 048
  9. AZOPT [Concomitant]
     Indication: INTRAOCULAR PRESSURE INCREASED
     Dosage: UNK

REACTIONS (7)
  - Thirst [Recovered/Resolved]
  - Fatigue [Recovered/Resolved]
  - Drug hypersensitivity [Unknown]
  - Physical examination abnormal [Recovered/Resolved]
  - Dry mouth [Recovered/Resolved]
  - Bradycardia [Recovered/Resolved]
  - Blood pressure decreased [Recovered/Resolved]
